FAERS Safety Report 19116137 (Version 1)
Quarter: 2021Q2

REPORT INFORMATION
  Report Type: Spontaneous
  Country: US (occurrence: US)
  Receive Date: 20210409
  Receipt Date: 20210409
  Transmission Date: 20210717
  Serious: No
  Sender: FDA-Public Use
  Company Number: US-GW PHARMA-202103USGW01432

PATIENT

DRUGS (1)
  1. EPIDIOLEX [Suspect]
     Active Substance: CANNABIDIOL
     Indication: SEIZURE
     Dosage: 50 MILLIGRAM, BID
     Route: 048
     Dates: start: 202005, end: 202101

REACTIONS (4)
  - Anal erythema [Unknown]
  - Product administered to patient of inappropriate age [Unknown]
  - Proctalgia [Unknown]
  - Diarrhoea [Unknown]
